FAERS Safety Report 15826099 (Version 1)
Quarter: 2019Q1

REPORT INFORMATION
  Report Type: Spontaneous
  Country: CA (occurrence: US)
  Receive Date: 20190115
  Receipt Date: 20190115
  Transmission Date: 20190417
  Serious: Yes (Other)
  Sender: FDA-Public Use
  Company Number: CA-REGENERON PHARMACEUTICALS, INC.-2017-30212

PATIENT

DRUGS (1)
  1. EYLEA [Suspect]
     Active Substance: AFLIBERCEPT
     Indication: PRODUCT USED FOR UNKNOWN INDICATION
     Dosage: TOTAL DOSE OF 3 DOSES OF EYLEA PRIOR EVENT
     Route: 031
     Dates: start: 20170613

REACTIONS (4)
  - Inadequate aseptic technique in use of product [Unknown]
  - Hypopyon [Unknown]
  - Eye inflammation [Unknown]
  - Vitritis [Unknown]
